FAERS Safety Report 5955907-0 (Version None)
Quarter: 2008Q4

REPORT INFORMATION
  Report Type: 
  Country: None (occurrence: None)
  Receive Date: 20081113
  Receipt Date: 20081029
  Transmission Date: 20090506
  Serious: Yes (Hospitalization)
  Sender: FDA-Public Use
  Company Number: 2008S1019825

PATIENT
  Age: 3 Year
  Sex: Male
  Weight: 15.8759 kg

DRUGS (8)
  1. IPRATROPIUM BROMIDE [Suspect]
     Indication: DYSPNOEA
     Dosage: 0.5 MG; X1; INHALATION
     Route: 055
     Dates: start: 20080923, end: 20080923
  2. ALBUTEROL SULFATE [Suspect]
     Indication: DYSPNOEA
     Dosage: 2.5 MG; X1; INHALATION
     Route: 055
     Dates: start: 20080923, end: 20080923
  3. SOLU-MEDROL [Suspect]
     Dosage: 30 MG; X1;
     Dates: start: 20080923, end: 20080923
  4. BENADRYL [Suspect]
     Dosage: 12.5 MG; X1;
     Dates: start: 20080923, end: 20080923
  5. EPINEPHRINE [Suspect]
     Dosage: ; X1;
     Dates: start: 20080923, end: 20080923
  6. PREDNISONE TAB [Suspect]
     Dosage: ; ORAL
     Route: 048
     Dates: start: 20080923
  7. XOPENEX [Concomitant]
  8. PULMICORT-100 [Concomitant]

REACTIONS (2)
  - ANAPHYLACTIC SHOCK [None]
  - HEART RATE INCREASED [None]
